FAERS Safety Report 4957439-5 (Version None)
Quarter: 2006Q1

REPORT INFORMATION
  Report Type: 
  Country: None (occurrence: None)
  Receive Date: 20060327
  Receipt Date: 20060313
  Transmission Date: 20060701
  Serious: Yes (Hospitalization)
  Sender: FDA-Public Use
  Company Number: 2006RR-01781

PATIENT
  Age: 56 Year
  Sex: Male

DRUGS (3)
  1. ENALAPRIL MALEATE [Suspect]
     Indication: HYPERTENSION
  2. ALITIZIDE-SPIRONOLACTONE (ALTIZIDE, SPIRONOLACTONE) [Suspect]
     Indication: HYPERTENSION
  3. INSULIN(INSULIN) [Concomitant]

REACTIONS (7)
  - AORTIC VALVE STENOSIS [None]
  - ASTHENIA [None]
  - DRUG INTERACTION [None]
  - FALL [None]
  - HYPERKALAEMIA [None]
  - RENAL IMPAIRMENT [None]
  - VOMITING [None]
